FAERS Safety Report 6477463-3 (Version None)
Quarter: 2009Q4

REPORT INFORMATION
  Report Type: 
  Country: None (occurrence: None)
  Receive Date: 20091207
  Receipt Date: 20091116
  Transmission Date: 20100525
  Serious: Yes (Life-Threatening)
  Sender: FDA-Public Use
  Company Number: IT-SANOFI-AVENTIS-2009SA001913

PATIENT
  Age: 62 Year
  Sex: Male

DRUGS (9)
  1. LASIX [Suspect]
     Route: 048
     Dates: start: 20090827, end: 20090902
  2. LASIX [Suspect]
     Dates: start: 20090901
  3. DINTOINA [Suspect]
     Indication: CONVULSION PROPHYLAXIS
     Route: 048
     Dates: start: 20090814, end: 20090905
  4. SOLDESAM [Concomitant]
     Indication: OEDEMA
     Route: 048
     Dates: start: 20090814
  5. FRISIUM [Concomitant]
     Indication: ANXIETY
     Route: 048
     Dates: start: 20090814
  6. KEPPRA [Concomitant]
     Indication: CONVULSION PROPHYLAXIS
     Route: 048
     Dates: start: 20090814
  7. NEXIUM /UNK/ [Concomitant]
     Indication: DRUG USE FOR UNKNOWN INDICATION
     Route: 048
     Dates: start: 20060101
  8. CLEXANE [Concomitant]
     Indication: PULMONARY EMBOLISM
     Dates: start: 20090902, end: 20090909
  9. CLEXANE [Concomitant]

REACTIONS (5)
  - DRUG RASH WITH EOSINOPHILIA AND SYSTEMIC SYMPTOMS [None]
  - EOSINOPHILIA [None]
  - PRURITUS [None]
  - RASH ERYTHEMATOUS [None]
  - TRANSAMINASES INCREASED [None]
